FAERS Safety Report 8423058-1 (Version None)
Quarter: 2012Q2

REPORT INFORMATION
  Report Type: 
  Country: None (occurrence: None)
  Receive Date: 20120608
  Receipt Date: 20120605
  Transmission Date: 20120825
  Serious: Yes (Hospitalization)
  Sender: FDA-Public Use
  Company Number: PHHY2012BR049073

PATIENT
  Sex: Female
  Weight: 79 kg

DRUGS (5)
  1. ACETAMINOPHEN W/ CODEINE [Concomitant]
     Indication: PROCEDURAL PAIN
     Dosage: 1 TABLET (30/500 MG) EVERY EIGHT HOURS
     Route: 048
  2. DIPYRONE TAB [Concomitant]
     Indication: NAUSEA
  3. EXFORGE HCT [Suspect]
     Indication: HYPERTENSION
     Dosage: 1 TABLET OF VALSARTAN/HYDROCHLOROTHIAZIDE (160/12.5 MG) A DAY+1 TABLET OF AMLODIPINE (5 MG) A DAY
     Route: 048
  4. DIPYRONE TAB [Concomitant]
     Indication: PROCEDURAL PAIN
     Dosage: 40 DROPS A DAY
     Route: 048
  5. LYSINE [Concomitant]
     Indication: PROCEDURAL PAIN
     Dosage: 1 TABLET AT NIGHT
     Route: 048

REACTIONS (9)
  - GAIT DISTURBANCE [None]
  - PROCEDURAL PAIN [None]
  - OSTEOARTHRITIS [None]
  - MUSCULAR WEAKNESS [None]
  - RENAL DISORDER [None]
  - OSTEOPOROSIS [None]
  - ARTHRALGIA [None]
  - BACK PAIN [None]
  - PAIN IN EXTREMITY [None]
